FAERS Safety Report 25125843 (Version 1)
Quarter: 2025Q1

REPORT INFORMATION
  Report Type: Spontaneous
  Country: US (occurrence: US)
  Receive Date: 20250326
  Receipt Date: 20250326
  Transmission Date: 20250408
  Serious: Yes (Other)
  Sender: GENMAB
  Company Number: US-GENMAB-2025-00814

PATIENT
  Sex: Male

DRUGS (1)
  1. EPKINLY [Suspect]
     Active Substance: EPCORITAMAB-BYSP
     Route: 065

REACTIONS (1)
  - Myelodysplastic syndrome [Unknown]
